FAERS Safety Report 4323502-5 (Version None)
Quarter: 2004Q1

REPORT INFORMATION
  Report Type: 
  Country: None (occurrence: None)
  Receive Date: 20040325
  Receipt Date: 20040316
  Transmission Date: 20041129
  Serious: Yes (Hospitalization)
  Sender: FDA-Public Use
  Company Number: PHRM2004FR01252

PATIENT
  Age: 38 Year
  Sex: Female
  Weight: 60 kg

DRUGS (8)
  1. ZOMETA [Suspect]
     Indication: HYPERCALCAEMIA OF MALIGNANCY
     Dosage: 4 MG, QMO
     Route: 042
     Dates: start: 20040211, end: 20040211
  2. LASIX [Concomitant]
     Route: 048
  3. TAXOL [Concomitant]
     Route: 042
     Dates: start: 20040120
  4. HERCEPTIN [Concomitant]
     Route: 042
     Dates: start: 20040120
  5. CORTANCYL [Concomitant]
     Dosage: 20 MG DAILY
     Route: 048
  6. EUPANTOL [Concomitant]
  7. STILNOX [Concomitant]
  8. COD EFFERALGAN [Concomitant]

REACTIONS (4)
  - HYPOCALCAEMIA [None]
  - PARAESTHESIA [None]
  - PARAESTHESIA ORAL [None]
  - TETANY [None]
